FAERS Safety Report 8960206 (Version 1)
Quarter: 2012Q4

REPORT INFORMATION
  Report Type: 
  Country: LV (occurrence: LV)
  Receive Date: 20121211
  Receipt Date: 20121211
  Transmission Date: 20130627
  Serious: Yes (Hospitalization)
  Sender: FDA-Public Use
  Company Number: LV-TEVA-373444ISR

PATIENT
  Age: 25 Year
  Sex: Female

DRUGS (2)
  1. DOXY-M [Suspect]
     Indication: SALPINGO-OOPHORITIS
     Route: 048
     Dates: start: 20121116
  2. TAVEGYL [Concomitant]
     Indication: DRUG HYPERSENSITIVITY
     Route: 048
     Dates: start: 20121117

REACTIONS (4)
  - Rash generalised [Unknown]
  - Erythema [Unknown]
  - Pruritus [Unknown]
  - Skin burning sensation [Unknown]
